FAERS Safety Report 4876267-2 (Version None)
Quarter: 2005Q4

REPORT INFORMATION
  Report Type: 
  Country: None (occurrence: None)
  Receive Date: 20051206
  Receipt Date: 20051004
  Transmission Date: 20060501
  Serious: No
  Sender: FDA-Public Use
  Company Number: USA0508105223

PATIENT
  Age: 53 Year
  Sex: Male

DRUGS (4)
  1. CYMBALTA [Suspect]
     Indication: MYOPATHY
     Dosage: 60 MG DAY
     Dates: start: 20050622, end: 20050719
  2. CYMBALTA [Suspect]
     Indication: PAIN
     Dosage: 60 MG DAY
     Dates: start: 20050622, end: 20050719
  3. NORCO [Concomitant]
  4. SKELAXIN [Concomitant]

REACTIONS (3)
  - DYSURIA [None]
  - TESTICULAR PAIN [None]
  - TESTICULAR SWELLING [None]
